FAERS Safety Report 22057313 (Version 1)
Quarter: 2023Q1

REPORT INFORMATION
  Report Type: Spontaneous
  Country: CN (occurrence: None)
  Receive Date: 20230303
  Receipt Date: 20230303
  Transmission Date: 20230417
  Serious: Yes (Other)
  Sender: FDA-Public Use
  Company Number: CN-ROCHE-3292466

PATIENT
  Sex: Female

DRUGS (16)
  1. HERCEPTIN [Suspect]
     Active Substance: TRASTUZUMAB
     Indication: Breast cancer
     Dosage: 8MG/KG, FOLLOWED BY 6MG/KG
     Route: 065
     Dates: start: 20210803
  2. HERCEPTIN [Suspect]
     Active Substance: TRASTUZUMAB
     Dosage: DUAL-TARGET MAINTENANCE
     Route: 065
     Dates: start: 202207
  3. HERCEPTIN [Suspect]
     Active Substance: TRASTUZUMAB
     Route: 065
     Dates: start: 202207
  4. PERJETA [Suspect]
     Active Substance: PERTUZUMAB
     Indication: Breast cancer
     Dosage: 840MG, FOLLOWED BY 420MG
     Route: 065
     Dates: start: 20210803
  5. PERJETA [Suspect]
     Active Substance: PERTUZUMAB
     Dosage: DUAL-TARGET MAINTENANCE
     Route: 065
  6. ADO-TRASTUZUMAB EMTANSINE [Concomitant]
     Active Substance: ADO-TRASTUZUMAB EMTANSINE
     Indication: Breast cancer
     Route: 041
     Dates: start: 20230131
  7. DOCETAXEL [Concomitant]
     Active Substance: DOCETAXEL
     Indication: Breast cancer
     Dates: start: 20210803
  8. CARBOPLATIN [Concomitant]
     Active Substance: CARBOPLATIN
     Indication: Breast cancer
     Dates: start: 20210803
  9. ZOLEDRONIC ACID [Concomitant]
     Active Substance: ZOLEDRONIC ACID
     Dates: start: 202108, end: 202112
  10. ZOLEDRONIC ACID [Concomitant]
     Active Substance: ZOLEDRONIC ACID
     Dates: start: 20220908
  11. CAPECITABINE [Concomitant]
     Active Substance: CAPECITABINE
     Indication: Breast cancer
     Dates: end: 202204
  12. CAPECITABINE [Concomitant]
     Active Substance: CAPECITABINE
     Route: 048
     Dates: start: 202207
  13. PYROTINIB [Concomitant]
     Active Substance: PYROTINIB
     Indication: Breast cancer
     Dates: end: 202204
  14. PYROTINIB [Concomitant]
     Active Substance: PYROTINIB
     Dosage: DF=TABLET
     Route: 048
     Dates: start: 202207
  15. BEVACIZUMAB [Concomitant]
     Active Substance: BEVACIZUMAB
     Indication: Breast cancer
     Route: 041
     Dates: start: 20230116
  16. BEVACIZUMAB [Concomitant]
     Active Substance: BEVACIZUMAB
     Route: 041
     Dates: start: 20230131

REACTIONS (2)
  - Myelosuppression [Unknown]
  - Diarrhoea [Unknown]
